FAERS Safety Report 5334332-X (Version None)
Quarter: 2007Q2

REPORT INFORMATION
  Report Type: 
  Country: None (occurrence: None)
  Receive Date: 20070525
  Receipt Date: 20060724
  Transmission Date: 20071010
  Serious: No
  Sender: FDA-Public Use
  Company Number: US-BRISTOL-MYERS SQUIBB COMPANY-13452065

PATIENT
  Age: 20 Year
  Sex: Female
  Weight: 86 kg

DRUGS (6)
  1. CYTOXAN [Suspect]
     Indication: MULTIPLE SCLEROSIS
     Route: 042
     Dates: start: 20060607
  2. AMERGE [Concomitant]
     Dates: start: 20060501
  3. CYMBALTA [Concomitant]
     Dates: start: 20060501
  4. PROMETHAZINE [Concomitant]
     Dates: start: 20060501
  5. REBIF [Concomitant]
     Dates: start: 20060501
  6. YASMIN [Concomitant]
     Indication: CONTRACEPTION
     Dates: start: 20060501

REACTIONS (3)
  - BONE PAIN [None]
  - DYSPNOEA [None]
  - INFLUENZA LIKE ILLNESS [None]
